FAERS Safety Report 15169797 (Version 2)
Quarter: 2018Q3

REPORT INFORMATION
  Report Type: Report from Study
  Country: US (occurrence: US)
  Receive Date: 20180720
  Receipt Date: 20180814
  Transmission Date: 20181010
  Serious: Yes (Other)
  Sender: FDA-Public Use
  Company Number: US-GILEAD-2018-0348063

PATIENT
  Age: 77 Year
  Sex: Female

DRUGS (2)
  1. AMBRISENTAN [Suspect]
     Active Substance: AMBRISENTAN
     Indication: PRODUCT USED FOR UNKNOWN INDICATION
     Dosage: 10 MG, QD
     Route: 065
     Dates: start: 20180227
  2. TYVASO [Concomitant]
     Active Substance: TREPROSTINIL

REACTIONS (10)
  - Vomiting [Unknown]
  - Dizziness [Unknown]
  - Fluid retention [Unknown]
  - Vaginal haemorrhage [Unknown]
  - Hallucination [Unknown]
  - Throat irritation [Recovering/Resolving]
  - Rectal haemorrhage [Unknown]
  - Hyperhidrosis [Unknown]
  - Cough [Recovering/Resolving]
  - Dizziness [Not Recovered/Not Resolved]

NARRATIVE: CASE EVENT DATE: 20180701
